FAERS Safety Report 11415261 (Version 1)
Quarter: 2015Q3

REPORT INFORMATION
  Report Type: Spontaneous
  Country: US (occurrence: None)
  Receive Date: 20150824
  Receipt Date: 20150824
  Transmission Date: 20151125
  Serious: Yes (Life-Threatening)
  Sender: FDA-Public Use
  Company Number: None

PATIENT
  Age: 73 Year
  Sex: Female
  Weight: 66.7 kg

DRUGS (16)
  1. ELIQUIS [Suspect]
     Active Substance: APIXABAN
     Indication: CEREBROVASCULAR ACCIDENT
     Route: 048
     Dates: start: 20150809, end: 20150821
  2. SIMVASTATIN. [Concomitant]
     Active Substance: SIMVASTATIN
  3. CHEWABLE ASPIRIN [Concomitant]
     Active Substance: ASPIRIN
  4. ALPRAZOLAM. [Concomitant]
     Active Substance: ALPRAZOLAM
  5. CLOPIDOGREL [Concomitant]
     Active Substance: CLOPIDOGREL BISULFATE
  6. ALBUTEROL. [Concomitant]
     Active Substance: ALBUTEROL
  7. MULTIVITAMIN [Concomitant]
     Active Substance: VITAMINS
  8. LANTUS [Concomitant]
     Active Substance: INSULIN GLARGINE
  9. NOVOLOG [Concomitant]
     Active Substance: INSULIN ASPART
  10. ELIQUIS [Suspect]
     Active Substance: APIXABAN
     Indication: EMBOLISM
     Route: 048
     Dates: start: 20150809, end: 20150821
  11. ALLOPURINOL. [Concomitant]
     Active Substance: ALLOPURINOL
  12. CALCITRIOL. [Concomitant]
     Active Substance: CALCITRIOL
  13. ADVAIR HFA [Concomitant]
     Active Substance: FLUTICASONE PROPIONATE\SALMETEROL XINAFOATE
  14. ELIQUIS [Concomitant]
     Active Substance: APIXABAN
  15. CARVEDILOL. [Concomitant]
     Active Substance: CARVEDILOL
  16. INSULIN [Concomitant]
     Active Substance: INSULIN NOS

REACTIONS (2)
  - Rectal haemorrhage [None]
  - Hypotension [None]

NARRATIVE: CASE EVENT DATE: 20150821
